FAERS Safety Report 21047340 (Version 2)
Quarter: 2022Q4

REPORT INFORMATION
  Report Type: Spontaneous
  Country: US (occurrence: US)
  Receive Date: 20220706
  Receipt Date: 20221003
  Transmission Date: 20230112
  Serious: Yes (Death, Other)
  Sender: FDA-Public Use
  Company Number: US-SA-SAC20220705001087

PATIENT
  Age: 64 Year
  Sex: Male

DRUGS (2)
  1. ZANTAC [Suspect]
     Active Substance: RANITIDINE HYDROCHLORIDE
     Indication: Gastrooesophageal reflux disease
     Dosage: 150 MG, QD
     Route: 065
     Dates: start: 200006, end: 200406
  2. ZANTAC [Suspect]
     Active Substance: RANITIDINE HYDROCHLORIDE
     Indication: Dyspepsia

REACTIONS (6)
  - Hepatic cancer stage IV [Fatal]
  - Lung neoplasm malignant [Fatal]
  - Pancreatic carcinoma [Fatal]
  - Gastric cancer [Fatal]
  - Gallbladder cancer [Fatal]
  - Bone cancer [Fatal]

NARRATIVE: CASE EVENT DATE: 20191201
